FAERS Safety Report 15399826 (Version 1)
Quarter: 2018Q3

REPORT INFORMATION
  Report Type: Spontaneous
  Country: US (occurrence: US)
  Receive Date: 20180913
  Receipt Date: 20180913
  Transmission Date: 20181010
  Serious: Yes (Other)
  Sender: FDA-Public Use
  Company Number: None

PATIENT
  Age: 4 Month
  Sex: Male
  Weight: 8.67 kg

DRUGS (7)
  1. PROPOFOL. [Concomitant]
     Active Substance: PROPOFOL
     Dates: start: 20180912, end: 20180912
  2. ROCURONIUM [Concomitant]
     Active Substance: ROCURONIUM BROMIDE
     Dates: start: 20180912, end: 20180912
  3. FENTANYL. [Concomitant]
     Active Substance: FENTANYL
     Dates: start: 20180912, end: 20180912
  4. SUGAMMADEX [Suspect]
     Active Substance: SUGAMMADEX
     Indication: NEUROMUSCULAR BLOCKADE REVERSAL
     Dosage: ?          OTHER FREQUENCY:DIVIDED DOSES;?
     Route: 040
     Dates: start: 20180912, end: 20180912
  5. BUPIVACAINE WITH EPINEPHRINE [Concomitant]
     Active Substance: BUPIVACAINE\EPINEPHRINE
     Dates: start: 20180912, end: 20180912
  6. DEXAMETHASONE. [Concomitant]
     Active Substance: DEXAMETHASONE
     Dates: start: 20180912, end: 20180912
  7. SEVOFLURANE. [Concomitant]
     Active Substance: SEVOFLURANE
     Dates: start: 20180912, end: 20180912

REACTIONS (3)
  - Muscular weakness [None]
  - Neuromuscular block prolonged [None]
  - Drug ineffective [None]

NARRATIVE: CASE EVENT DATE: 20180912
